FAERS Safety Report 18298741 (Version 6)
Quarter: 2021Q1

REPORT INFORMATION
  Report Type: Spontaneous
  Country: CZ (occurrence: CZ)
  Receive Date: 20200923
  Receipt Date: 20210329
  Transmission Date: 20210419
  Serious: Yes (Life-Threatening, Hospitalization, Other)
  Sender: FDA-Public Use
  Company Number: CZ-AUROBINDO-AUR-APL-2020-047098

PATIENT
  Age: 9 Year
  Sex: Female
  Weight: 30 kg

DRUGS (16)
  1. LINEZOLID SOLUTION FOR INFUSION [Suspect]
     Active Substance: LINEZOLID
     Indication: MYCOBACTERIAL INFECTION
     Dosage: 270 MILLIGRAM, 3 TIMES A DAY
     Route: 042
  2. AMIKACIN. [Suspect]
     Active Substance: AMIKACIN
     Dosage: 400 MILLIGRAM, TWO TIMES A DAY
     Route: 065
  3. AMIKACIN. [Suspect]
     Active Substance: AMIKACIN
     Indication: MYCOBACTERIAL INFECTION
     Dosage: 200 MILLIGRAM, TWO TIMES A DAY (400 MILLIGRAM, ONCE A DAY)
     Route: 042
  4. VALACICLOVIR [Suspect]
     Active Substance: VALACYCLOVIR HYDROCHLORIDE
     Indication: MYCOBACTERIAL INFECTION
     Dosage: 500 MILLIGRAM, ONCE A DAY
     Route: 065
  5. MEROPENEM. [Concomitant]
     Active Substance: MEROPENEM
     Dosage: 9 GRAM, ONCE A DAY (3 G/DAY IN 3 DAILY DOSES)
     Route: 065
  6. VALACICLOVIR [Suspect]
     Active Substance: VALACYCLOVIR HYDROCHLORIDE
     Indication: ANTIVIRAL TREATMENT
  7. POSACONAZOLE [Concomitant]
     Active Substance: POSACONAZOLE
     Indication: ANTIFUNGAL TREATMENT
     Dosage: 336 MILLIGRAM, ONCE A DAY
     Route: 065
  8. PREDNISONE. [Concomitant]
     Active Substance: PREDNISONE
     Dosage: 0.67 MILLIGRAM/KILOGRAM, ONCE A DAY
     Route: 065
  9. SIROLIMUS. [Concomitant]
     Active Substance: SIROLIMUS
     Indication: IMMUNOSUPPRESSANT DRUG THERAPY
     Dosage: UNK
     Route: 065
  10. BUDESONIDE. [Concomitant]
     Active Substance: BUDESONIDE
     Indication: GRAFT VERSUS HOST DISEASE
     Dosage: 0.3 MILLIGRAM/KILOGRAM, DAILY
     Route: 065
  11. SIROLIMUS. [Concomitant]
     Active Substance: SIROLIMUS
     Indication: CHRONIC GRAFT VERSUS HOST DISEASE
  12. POSACONAZOLE [Concomitant]
     Active Substance: POSACONAZOLE
     Indication: MYCOBACTERIAL INFECTION
     Dosage: 37.3 MILLIGRAM, 3 TIMES A DAY (112 GRAM, ONCE A DAY)
     Route: 065
  13. LINEZOLID SOLUTION FOR INFUSION [Suspect]
     Active Substance: LINEZOLID
     Indication: MYCOBACTERIUM ABSCESSUS INFECTION
     Dosage: 2430 MILLIGRAM, ONCE A DAY
     Route: 042
  14. MEROPENEM. [Concomitant]
     Active Substance: MEROPENEM
     Indication: MYCOBACTERIAL INFECTION
     Dosage: 1 GRAM, 3 TIMES A DAY (3 GRAM, ONCE A DAY)
     Route: 042
  15. PREDNISONE. [Concomitant]
     Active Substance: PREDNISONE
     Indication: GRAFT VERSUS HOST DISEASE
     Dosage: 0.6 MILLIGRAM/KILOGRAM, DAILY
     Route: 065
  16. PREDNISONE. [Concomitant]
     Active Substance: PREDNISONE
     Dosage: 1.67 MILLIGRAM/KILOGRAM, DAILY
     Route: 065

REACTIONS (18)
  - Hypoalbuminaemia [Recovered/Resolved]
  - Lactic acidosis [Recovered/Resolved]
  - Kussmaul respiration [Recovered/Resolved]
  - Toxicity to various agents [Recovered/Resolved]
  - Aminoaciduria [Recovered/Resolved]
  - Off label use [Unknown]
  - Transaminases increased [Recovered/Resolved]
  - Neuropathy peripheral [Not Recovered/Not Resolved]
  - Vomiting [Recovered/Resolved]
  - Electrolyte imbalance [Recovered/Resolved]
  - Product use in unapproved indication [Unknown]
  - Product use issue [Unknown]
  - Altered state of consciousness [Recovered/Resolved]
  - Alanine aminotransferase increased [Unknown]
  - Antibiotic level above therapeutic [Recovered/Resolved]
  - Mitochondrial cytopathy [Unknown]
  - Tachycardia [Recovered/Resolved]
  - Myelosuppression [Unknown]
